FAERS Safety Report 15220212 (Version 3)
Quarter: 2018Q3

REPORT INFORMATION
  Report Type: Report from Study
  Country: US (occurrence: US)
  Receive Date: 20180731
  Receipt Date: 20180911
  Transmission Date: 20181010
  Serious: Yes (Other)
  Sender: FDA-Public Use
  Company Number: US-AMGEN-USASP2018102174

PATIENT
  Age: 85 Year
  Sex: Female
  Weight: 57.42 kg

DRUGS (2)
  1. PROLIA [Suspect]
     Active Substance: DENOSUMAB
     Indication: OSTEOPOROSIS POSTMENOPAUSAL
     Dosage: 60 MG, Q6MO
     Route: 058
     Dates: start: 20141117, end: 2018
  2. HYDROXYCHLOROQUINE [Concomitant]
     Active Substance: HYDROXYCHLOROQUINE
     Dosage: 200 MG, BID
     Dates: start: 2006

REACTIONS (3)
  - Osteonecrosis of jaw [Unknown]
  - Gingival disorder [Unknown]
  - Exostosis of jaw [Unknown]

NARRATIVE: CASE EVENT DATE: 20180718
